FAERS Safety Report 11083782 (Version 2)
Quarter: 2015Q2

REPORT INFORMATION
  Report Type: Spontaneous
  Country: US (occurrence: US)
  Receive Date: 20150501
  Receipt Date: 20150514
  Transmission Date: 20150821
  Serious: Yes (Other)
  Sender: FDA-Public Use
  Company Number: US-GLAXOSMITHKLINE INC.-US2015GSK057704

PATIENT
  Age: 55 Year
  Sex: Female

DRUGS (1)
  1. ADVAIR DISKUS [Suspect]
     Active Substance: FLUTICASONE PROPIONATE\SALMETEROL XINAFOATE
     Indication: ASTHMA
     Dosage: UNK
     Dates: start: 199411

REACTIONS (8)
  - Vaginal cancer [Unknown]
  - Depression [Unknown]
  - Cataract [Unknown]
  - Eye disorder [Unknown]
  - Anxiety [Unknown]
  - Lip neoplasm malignant stage unspecified [Unknown]
  - Malignant melanoma [Unknown]
  - Surgery [Unknown]

NARRATIVE: CASE EVENT DATE: 200410
